FAERS Safety Report 20518744 (Version 1)
Quarter: 2022Q1

REPORT INFORMATION
  Report Type: Spontaneous
  Country: US (occurrence: None)
  Receive Date: 20220224
  Receipt Date: 20220224
  Transmission Date: 20220424
  Serious: Yes (Other)
  Sender: FDA-Public Use
  Company Number: None

PATIENT
  Age: 75 Year
  Sex: Male
  Weight: 66.6 kg

DRUGS (8)
  1. XTANDI [Suspect]
     Active Substance: ENZALUTAMIDE
     Indication: Prostate cancer
     Dosage: FREQUENCY : DAILY;?
     Route: 048
     Dates: start: 20210518
  2. ASPIRIN [Concomitant]
     Active Substance: ASPIRIN
  3. atorvastatin 80 [Concomitant]
  4. citalopram 10 [Concomitant]
  5. LOSARTAN [Concomitant]
     Active Substance: LOSARTAN
  6. Toprol XL 50 mg [Concomitant]
  7. TRELEGY ELLIPTA [Concomitant]
     Active Substance: FLUTICASONE FUROATE\UMECLIDINIUM BROMIDE\VILANTEROL TRIFENATATE
  8. VENTOLIN HFA [Concomitant]
     Active Substance: ALBUTEROL SULFATE

REACTIONS (3)
  - Fatigue [None]
  - Chronic obstructive pulmonary disease [None]
  - Asthenia [None]
